FAERS Safety Report 14140969 (Version 1)
Quarter: 2017Q4

REPORT INFORMATION
  Report Type: Spontaneous
  Country: PL (occurrence: PL)
  Receive Date: 20171030
  Receipt Date: 20171030
  Transmission Date: 20180321
  Serious: Yes (Other)
  Sender: FDA-Public Use
  Company Number: PL-BRISTOL-MYERS SQUIBB COMPANY-BMS-2017-095779

PATIENT
  Sex: Female

DRUGS (1)
  1. ELIQUIS [Suspect]
     Active Substance: APIXABAN
     Indication: CEREBROVASCULAR ACCIDENT PROPHYLAXIS
     Dosage: UNK
     Route: 065
     Dates: start: 201701

REACTIONS (6)
  - Sinus node dysfunction [Unknown]
  - Muscular weakness [Unknown]
  - Muscle disorder [Unknown]
  - Gait disturbance [Unknown]
  - Hypotonia [Unknown]
  - Musculoskeletal stiffness [Unknown]
